FAERS Safety Report 6104061-3 (Version None)
Quarter: 2009Q1

REPORT INFORMATION
  Report Type: 
  Country: None (occurrence: None)
  Receive Date: 20090305
  Receipt Date: 20090223
  Transmission Date: 20090719
  Serious: Yes (Hospitalization)
  Sender: FDA-Public Use
  Company Number: FR-PFIZER INC-2006054842

PATIENT

DRUGS (3)
  1. SUNITINIB MALATE [Suspect]
     Indication: RENAL CELL CARCINOMA
     Dosage: 50 MG, 1X/DAY
     Route: 048
     Dates: start: 20051129, end: 20060321
  2. COZAAR [Concomitant]
     Route: 048
  3. DURAGESIC-100 [Concomitant]
     Route: 048
     Dates: start: 20051212

REACTIONS (2)
  - BRADYCARDIA [None]
  - HYPOTHERMIA [None]
